FAERS Safety Report 8422478-9 (Version None)
Quarter: 2012Q2

REPORT INFORMATION
  Report Type: 
  Country: None (occurrence: None)
  Receive Date: 20120608
  Receipt Date: 20120530
  Transmission Date: 20120825
  Serious: Yes (Hospitalization)
  Sender: FDA-Public Use
  Company Number: FR-ASTRAZENECA-2011SE71540

PATIENT
  Sex: Male
  Weight: 5 kg

DRUGS (1)
  1. XYLOCAINE [Suspect]
     Indication: CIRCUMCISION
     Dosage: 14 MG/KG (70 MG)
     Route: 050
     Dates: start: 20111028, end: 20111028

REACTIONS (4)
  - DRUG DISPENSING ERROR [None]
  - CONVULSION [None]
  - CYANOSIS [None]
  - BRADYCARDIA [None]
